FAERS Safety Report 20906453 (Version 1)
Quarter: 2022Q2

REPORT INFORMATION
  Report Type: Spontaneous
  Country: IT (occurrence: IT)
  Receive Date: 20220602
  Receipt Date: 20220602
  Transmission Date: 20220721
  Serious: Yes (Other)
  Sender: FDA-Public Use
  Company Number: IT-VERTEX PHARMACEUTICALS-2022-007201

PATIENT

DRUGS (4)
  1. ELEXACAFTOR\IVACAFTOR\TEZACAFTOR [Suspect]
     Active Substance: ELEXACAFTOR\IVACAFTOR\TEZACAFTOR
     Indication: Cystic fibrosis
     Dosage: 2 TABS (75 MG IVA/50 MG TEZA/100 MG ELEXA) AM
     Route: 048
     Dates: start: 20211123, end: 20211218
  2. ELEXACAFTOR\IVACAFTOR\TEZACAFTOR [Suspect]
     Active Substance: ELEXACAFTOR\IVACAFTOR\TEZACAFTOR
     Dosage: 2 TABS (75 MG IVA/50 MG TEZA/100 MG ELEXA) AM
     Route: 048
     Dates: start: 20220117, end: 20220124
  3. KALYDECO [Suspect]
     Active Substance: IVACAFTOR
     Indication: Cystic fibrosis
     Dosage: 1 TABLET PM
     Route: 048
     Dates: start: 20211123, end: 20211218
  4. KALYDECO [Suspect]
     Active Substance: IVACAFTOR
     Dosage: 1 TABLET PM
     Route: 048
     Dates: start: 20220117, end: 20220124

REACTIONS (6)
  - Drug-induced liver injury [Recovered/Resolved]
  - Aspartate aminotransferase increased [Recovered/Resolved]
  - Alanine aminotransferase increased [Recovered/Resolved]
  - Gamma-glutamyltransferase increased [Recovered/Resolved]
  - Blood bilirubin increased [Recovered/Resolved]
  - Bilirubin conjugated increased [Recovered/Resolved]

NARRATIVE: CASE EVENT DATE: 20211218
